FAERS Safety Report 7714948-3 (Version None)
Quarter: 2011Q3

REPORT INFORMATION
  Report Type: 
  Country: None (occurrence: None)
  Receive Date: 20110822
  Receipt Date: 20110810
  Transmission Date: 20111222
  Serious: Yes (Other)
  Sender: FDA-Public Use
  Company Number: IPC201108-003146

PATIENT

DRUGS (2)
  1. METOCLOPRAMIDE HYDROCHLORIDE [Suspect]
     Dosage: ORAL
     Route: 048
     Dates: start: 20071101, end: 20100501
  2. REGLAN [Suspect]
     Dosage: ORAL
     Route: 048
     Dates: start: 20071101, end: 20100501

REACTIONS (6)
  - RESTLESS LEGS SYNDROME [None]
  - CONDITION AGGRAVATED [None]
  - TREMOR [None]
  - PRE-EXISTING DISEASE [None]
  - TARDIVE DYSKINESIA [None]
  - EXTRAPYRAMIDAL DISORDER [None]
